FAERS Safety Report 6043324-7 (Version None)
Quarter: 2009Q1

REPORT INFORMATION
  Report Type: 
  Country: None (occurrence: None)
  Receive Date: 20090120
  Receipt Date: 20090116
  Transmission Date: 20090719
  Serious: Yes (Death)
  Sender: FDA-Public Use
  Company Number: US-RANBAXY-2009US-20596

PATIENT

DRUGS (6)
  1. IBUPROFEN [Suspect]
     Indication: DRUG USE FOR UNKNOWN INDICATION
     Dosage: UNK, UNK
     Route: 048
  2. DRAIN OPENER [Suspect]
     Indication: DRUG USE FOR UNKNOWN INDICATION
  3. METHANOL [Suspect]
     Indication: DRUG USE FOR UNKNOWN INDICATION
  4. DOXYLAMINE [Suspect]
     Indication: DRUG USE FOR UNKNOWN INDICATION
  5. DIPHENHYDRAMINE HCL [Suspect]
     Indication: DRUG USE FOR UNKNOWN INDICATION
  6. DEXTROMETHORPHAN HYDROBROMIDE [Suspect]
     Indication: DRUG USE FOR UNKNOWN INDICATION

REACTIONS (1)
  - COMPLETED SUICIDE [None]
